FAERS Safety Report 23057889 (Version 6)
Quarter: 2023Q4

REPORT INFORMATION
  Report Type: Report from Study
  Country: US (occurrence: US)
  Receive Date: 20231012
  Receipt Date: 20231125
  Transmission Date: 20240110
  Serious: Yes (Other)
  Sender: FDA-Public Use
  Company Number: US-JNJFOC-20231007760

PATIENT
  Age: 50 Year
  Sex: Female

DRUGS (11)
  1. SELEXIPAG [Suspect]
     Active Substance: SELEXIPAG
     Indication: Pulmonary arterial hypertension
     Dosage: USING 3- 200MCG TABS.
     Route: 048
     Dates: start: 202212
  2. SELEXIPAG [Suspect]
     Active Substance: SELEXIPAG
     Route: 048
     Dates: start: 202212
  3. SELEXIPAG [Suspect]
     Active Substance: SELEXIPAG
     Route: 048
     Dates: start: 202212
  4. SELEXIPAG [Suspect]
     Active Substance: SELEXIPAG
     Route: 048
     Dates: start: 202212
  5. SELEXIPAG [Suspect]
     Active Substance: SELEXIPAG
     Route: 048
     Dates: start: 20231010, end: 202310
  6. REMODULIN [Suspect]
     Active Substance: TREPROSTINIL
     Indication: Pulmonary arterial hypertension
     Route: 058
     Dates: start: 202309
  7. REMODULIN [Suspect]
     Active Substance: TREPROSTINIL
     Dosage: 28UL/HR
     Route: 058
     Dates: start: 20231010, end: 202310
  8. REMODULIN [Suspect]
     Active Substance: TREPROSTINIL
     Route: 058
     Dates: start: 20231014
  9. REMODULIN [Suspect]
     Active Substance: TREPROSTINIL
     Route: 058
     Dates: start: 20231010, end: 20231014
  10. REMODULIN [Suspect]
     Active Substance: TREPROSTINIL
     Route: 058
     Dates: start: 2023
  11. REMODULIN [Suspect]
     Active Substance: TREPROSTINIL
     Route: 058
     Dates: start: 202310

REACTIONS (25)
  - Abdominal pain upper [Not Recovered/Not Resolved]
  - Headache [Not Recovered/Not Resolved]
  - Pain in jaw [Unknown]
  - Infusion site pain [Not Recovered/Not Resolved]
  - Inflammation [Unknown]
  - Infusion site erythema [Unknown]
  - Therapy change [Unknown]
  - Nausea [Recovered/Resolved]
  - Pain [Not Recovered/Not Resolved]
  - Hypotension [Not Recovered/Not Resolved]
  - Insomnia [Not Recovered/Not Resolved]
  - Arthralgia [Unknown]
  - Pain in extremity [Unknown]
  - Bedridden [Unknown]
  - Fatigue [Recovered/Resolved]
  - Migraine [Recovered/Resolved]
  - Dyspnoea [Unknown]
  - Abdominal distension [Not Recovered/Not Resolved]
  - Infusion site irritation [Unknown]
  - Blood pressure increased [Unknown]
  - Vomiting [Recovered/Resolved]
  - Rash pruritic [Not Recovered/Not Resolved]
  - Gastritis [Not Recovered/Not Resolved]
  - Dyspepsia [Not Recovered/Not Resolved]
  - Erythema [Not Recovered/Not Resolved]

NARRATIVE: CASE EVENT DATE: 20230101
